FAERS Safety Report 14966828 (Version 1)
Quarter: 2018Q2

REPORT INFORMATION
  Report Type: Spontaneous
  Country: CN (occurrence: CN)
  Receive Date: 20180604
  Receipt Date: 20180604
  Transmission Date: 20180711
  Serious: No
  Sender: FDA-Public Use
  Company Number: CN-CHEPLA-1938779

PATIENT
  Sex: Female

DRUGS (3)
  1. GINSENG [Concomitant]
     Active Substance: ASIAN GINSENG
     Indication: CARDIAC DISORDER
  2. XENICAL [Suspect]
     Active Substance: ORLISTAT
     Indication: PRODUCT USED FOR UNKNOWN INDICATION
     Route: 048
     Dates: start: 20170519
  3. TRICHOLOMA MATSUTAKE [Concomitant]
     Indication: CARDIAC DISORDER

REACTIONS (2)
  - Steatorrhoea [Unknown]
  - Hypoaesthesia [Not Recovered/Not Resolved]

NARRATIVE: CASE EVENT DATE: 20170522
